FAERS Safety Report 14919040 (Version 3)
Quarter: 2018Q2

REPORT INFORMATION
  Report Type: Spontaneous
  Country: US (occurrence: US)
  Receive Date: 20180521
  Receipt Date: 20180625
  Transmission Date: 20180711
  Serious: Yes (Hospitalization, Other)
  Sender: FDA-Public Use
  Company Number: US-PFIZER INC-2018202759

PATIENT
  Age: 54 Year
  Sex: Female
  Weight: 113.4 kg

DRUGS (3)
  1. XELJANZ XR [Suspect]
     Active Substance: TOFACITINIB CITRATE
     Indication: RHEUMATOID ARTHRITIS
     Dosage: 11 MG, ONCE A DAY
     Route: 048
     Dates: start: 2018, end: 20180417
  2. XELJANZ XR [Suspect]
     Active Substance: TOFACITINIB CITRATE
     Dosage: 11 MG, 1X/DAY
     Route: 048
     Dates: start: 20180410
  3. REMICADE [Suspect]
     Active Substance: INFLIXIMAB
     Dosage: UNK
     Dates: start: 20180312

REACTIONS (7)
  - Haemorrhage [Unknown]
  - Feeling abnormal [Unknown]
  - Condition aggravated [Unknown]
  - Bursitis infective [Unknown]
  - Memory impairment [Unknown]
  - Cellulitis [Unknown]
  - Weight increased [Unknown]

NARRATIVE: CASE EVENT DATE: 2018
